FAERS Safety Report 17871464 (Version 1)
Quarter: 2020Q2

REPORT INFORMATION
  Report Type: Spontaneous
  Country: US (occurrence: US)
  Receive Date: 20200608
  Receipt Date: 20200608
  Transmission Date: 20200714
  Serious: No
  Sender: FDA-Public Use
  Company Number: None

PATIENT
  Age: 61 Year
  Sex: Female
  Weight: 53.64 kg

DRUGS (15)
  1. LIPITOR [Concomitant]
     Active Substance: ATORVASTATIN CALCIUM
  2. GABAPENTIN. [Concomitant]
     Active Substance: GABAPENTIN
  3. MULTIVIT [Concomitant]
     Active Substance: VITAMINS
  4. OMEPRAZOLE. [Concomitant]
     Active Substance: OMEPRAZOLE
  5. TAMOXIFEN [Concomitant]
     Active Substance: TAMOXIFEN
  6. ASPIRIN. [Concomitant]
     Active Substance: ASPIRIN
  7. LORAZEPAM. [Concomitant]
     Active Substance: LORAZEPAM
  8. VITAMIN D3 [Concomitant]
     Active Substance: CHOLECALCIFEROL
  9. FISH OIL [Concomitant]
     Active Substance: FISH OIL
  10. TRAMADOL. [Concomitant]
     Active Substance: TRAMADOL
  11. LANTUS [Concomitant]
     Active Substance: INSULIN GLARGINE
  12. IBRANCE [Suspect]
     Active Substance: PALBOCICLIB
     Indication: BREAST CANCER
     Dates: start: 20200415, end: 20200608
  13. ALLOPURINOL. [Concomitant]
     Active Substance: ALLOPURINOL
  14. DICLOFENAC [Concomitant]
     Active Substance: DICLOFENAC
  15. OXYCODONE-ACETAMINOPHEN [Concomitant]
     Active Substance: ACETAMINOPHEN\OXYCODONE HYDROCHLORIDE

REACTIONS (2)
  - Hepatic failure [None]
  - Pain [None]

NARRATIVE: CASE EVENT DATE: 20200608
